FAERS Safety Report 8603844-5 (Version None)
Quarter: 2012Q3

REPORT INFORMATION
  Report Type: 
  Country: None (occurrence: None)
  Receive Date: 20120818
  Receipt Date: 20100429
  Transmission Date: 20120928
  Serious: Yes (Death)
  Sender: FDA-Public Use
  Company Number: PHHY2010GE094415

PATIENT
  Sex: Female

DRUGS (1)
  1. IMATINIB MESYLATE [Suspect]
     Dosage: UNK UKN, UNK
     Dates: start: 20090529

REACTIONS (1)
  - DEATH [None]
